FAERS Safety Report 24027893 (Version 1)
Quarter: 2024Q2

REPORT INFORMATION
  Report Type: Spontaneous
  Country: US (occurrence: US)
  Receive Date: 20240628
  Receipt Date: 20240628
  Transmission Date: 20240716
  Serious: No
  Sender: FDA-Public Use
  Company Number: US-BRISTOL-MYERS SQUIBB COMPANY-2024-102711

PATIENT
  Age: 82 Year
  Sex: Male
  Weight: 77.11 kg

DRUGS (1)
  1. REVLIMID [Suspect]
     Active Substance: LENALIDOMIDE
     Indication: Mantle cell lymphoma
     Dosage: 15MG CAPSULE  EVERY OTHER DAY  ON DAYS 1-21 THEN  7 DAYS OFF
     Route: 048

REACTIONS (1)
  - Off label use [Unknown]
